FAERS Safety Report 8058977-1 (Version None)
Quarter: 2012Q1

REPORT INFORMATION
  Report Type: 
  Country: None (occurrence: None)
  Receive Date: 20120120
  Receipt Date: 20120105
  Transmission Date: 20120608
  Serious: Yes (Death, Life-Threatening, Hospitalization, Other)
  Sender: FDA-Public Use
  Company Number: ES-CELGENEUS-144-50794-12010695

PATIENT
  Sex: Female
  Weight: 66 kg

DRUGS (7)
  1. VIDAZA [Suspect]
     Route: 065
     Dates: start: 20080211, end: 20080219
  2. ENOXAPARIN [Interacting]
     Indication: ATRIAL FIBRILLATION
     Route: 065
     Dates: start: 20071126
  3. DIGOXIN [Concomitant]
     Indication: ATRIAL FIBRILLATION
     Route: 065
  4. ALPRAZOLAM [Concomitant]
     Route: 065
  5. METFORMIN HCL [Concomitant]
     Indication: DIABETES MELLITUS
     Route: 065
     Dates: end: 20080406
  6. ESOMEPRAZOLE [Concomitant]
     Route: 065
  7. VALSARTAN [Concomitant]
     Route: 065

REACTIONS (3)
  - PNEUMONIA [None]
  - CARDIAC FAILURE [None]
  - RESPIRATORY TRACT INFECTION [None]
